FAERS Safety Report 6654936-1 (Version None)
Quarter: 2010Q1

REPORT INFORMATION
  Report Type: 
  Country: None (occurrence: None)
  Receive Date: 20100329
  Receipt Date: 20100318
  Transmission Date: 20100710
  Serious: No
  Sender: FDA-Public Use
  Company Number: US-BIOGENIDEC-2010BI009134

PATIENT
  Age: 45 Year
  Sex: Female

DRUGS (2)
  1. AVONEX [Suspect]
     Indication: MULTIPLE SCLEROSIS
     Route: 030
     Dates: start: 20050101
  2. AVONEX [Suspect]
     Route: 030
     Dates: start: 20011101, end: 20050101

REACTIONS (13)
  - BACK PAIN [None]
  - COUGH [None]
  - FATIGUE [None]
  - HEADACHE [None]
  - HYPERSENSITIVITY [None]
  - HYPERSOMNIA [None]
  - INJECTION SITE HAEMATOMA [None]
  - INJECTION SITE PAIN [None]
  - MULTIPLE SCLEROSIS RELAPSE [None]
  - MYALGIA [None]
  - RHINORRHOEA [None]
  - UPPER AIRWAY OBSTRUCTION [None]
  - WHEEZING [None]
